FAERS Safety Report 15674246 (Version 1)
Quarter: 2018Q4

REPORT INFORMATION
  Report Type: Spontaneous
  Country: ES (occurrence: ES)
  Receive Date: 20181130
  Receipt Date: 20181130
  Transmission Date: 20190205
  Serious: Yes (Other)
  Sender: FDA-Public Use
  Company Number: ES-TEVA-2018-ES-980469

PATIENT
  Age: 52 Year
  Sex: Male

DRUGS (4)
  1. IBUPROFENO (1769A) [Suspect]
     Active Substance: IBUPROFEN
     Indication: TOOTH INFECTION
     Route: 048
     Dates: start: 20181012, end: 20181012
  2. AMOXICILINA (108A) [Suspect]
     Active Substance: AMOXICILLIN
     Indication: TOOTH INFECTION
     Route: 048
     Dates: start: 20181012, end: 20181012
  3. TAMSULOSINA CINFA 0,4 MG CAPSULAS DURAS DE LIBERACION MODIFICADA EFG , [Concomitant]
     Dosage: .4 MILLIGRAM DAILY; 30 CAPSULES
     Route: 048
  4. STILNOX 10 MG COMPRIMIDOS RECUBIERTOS CON PELICULA , 30 COMPRIMIDOS [Concomitant]
     Dosage: 10 MILLIGRAM DAILY; 30 TABLETS
     Route: 048

REACTIONS (6)
  - Malaise [Recovered/Resolved]
  - Dizziness [Recovered/Resolved]
  - Nausea [Recovered/Resolved]
  - Pruritus [Recovered/Resolved]
  - Feeling hot [Recovered/Resolved]
  - Hypersensitivity [Recovered/Resolved]

NARRATIVE: CASE EVENT DATE: 20181012
